FAERS Safety Report 7541981-7 (Version None)
Quarter: 2011Q2

REPORT INFORMATION
  Report Type: 
  Country: None (occurrence: None)
  Receive Date: 20110524
  Receipt Date: 20110325
  Transmission Date: 20111010
  Serious: No
  Sender: FDA-Public Use
  Company Number: 030104

PATIENT
  Sex: Female
  Weight: 68 kg

DRUGS (3)
  1. CIMZIA [Suspect]
     Dosage: (400 MG 1X/4 WEEKS SUBCUTANEOUS), (SUBCUTANEOUS)
     Route: 058
  2. ESTROGEN NOS [Concomitant]
  3. SULFASALAZINE [Concomitant]

REACTIONS (2)
  - DRUG DOSE OMISSION [None]
  - OEDEMA PERIPHERAL [None]
